FAERS Safety Report 6228386-6 (Version None)
Quarter: 2009Q2

REPORT INFORMATION
  Report Type: 
  Country: None (occurrence: None)
  Receive Date: 20090612
  Receipt Date: 20090603
  Transmission Date: 20091009
  Serious: Yes (Hospitalization)
  Sender: FDA-Public Use
  Company Number: US-ELI_LILLY_AND_COMPANY-US200906000829

PATIENT
  Sex: Female
  Weight: 88.435 kg

DRUGS (15)
  1. BYETTA [Suspect]
     Indication: TYPE 2 DIABETES MELLITUS
     Dosage: 5 UG, 2/D
     Route: 058
     Dates: start: 20070101, end: 20070101
  2. BYETTA [Suspect]
     Dosage: 10 UG, 2/D
     Route: 058
     Dates: start: 20070101, end: 20090101
  3. BYETTA [Suspect]
     Dosage: 10 UG, 2/D
     Route: 058
     Dates: start: 20090401, end: 20090401
  4. BYETTA [Suspect]
     Dosage: 5 UG, 2/D
     Route: 058
     Dates: start: 20090401, end: 20090501
  5. BYETTA [Suspect]
     Dosage: 10 UG, 2/D
     Route: 058
     Dates: start: 20090501
  6. METFORMIN HYDROCHLORIDE [Concomitant]
     Indication: TYPE 2 DIABETES MELLITUS
     Dosage: 1000 MG, 2/D
  7. ALTACE [Concomitant]
     Indication: BLOOD PRESSURE INCREASED
     Dosage: 10 MG, DAILY (1/D)
  8. ZANTAC [Concomitant]
     Indication: DYSPEPSIA
     Dosage: 300 MG, DAILY (1/D)
  9. SIMVASTATIN [Concomitant]
     Indication: BLOOD CHOLESTEROL INCREASED
     Dates: start: 20090101, end: 20090101
  10. VYTORIN [Concomitant]
     Dates: end: 20090101
  11. VYTORIN [Concomitant]
     Dosage: UNK, DAILY (1/D)
     Dates: start: 20090101
  12. TOPROL-XL [Concomitant]
     Indication: BLOOD PRESSURE INCREASED
     Dosage: 200 MG, DAILY (1/D)
  13. DETROL LA [Concomitant]
     Indication: BLADDER DISORDER
     Dosage: 4 MG, DAILY (1/D)
  14. ASPIRIN [Concomitant]
  15. DILTIAZEM [Concomitant]
     Indication: BLOOD PRESSURE INCREASED
     Dosage: 240 MG, 2/D

REACTIONS (10)
  - ABDOMINAL PAIN [None]
  - DECREASED APPETITE [None]
  - DEPRESSED LEVEL OF CONSCIOUSNESS [None]
  - GASTROINTESTINAL INFLAMMATION [None]
  - GASTROINTESTINAL PAIN [None]
  - MALAISE [None]
  - MEMORY IMPAIRMENT [None]
  - NAUSEA [None]
  - RECTAL HAEMORRHAGE [None]
  - WEIGHT DECREASED [None]
